FAERS Safety Report 7937465-4 (Version None)
Quarter: 2011Q4

REPORT INFORMATION
  Report Type: 
  Country: None (occurrence: None)
  Receive Date: 20111123
  Receipt Date: 20111104
  Transmission Date: 20120403
  Serious: Yes (Life-Threatening, Other)
  Sender: FDA-Public Use
  Company Number: PHHY2011IT098320

PATIENT
  Sex: Female

DRUGS (6)
  1. FLURAZEPAM HYDROCHLORIDE [Suspect]
     Dosage: 375 MG, ONCE/SINGLE
     Route: 048
     Dates: start: 20111002
  2. ANAFRANIL [Suspect]
     Indication: DEPRESSION
     Dosage: 1500 MG, ONCE/SINGLE
     Route: 048
     Dates: start: 20111002
  3. FLURAZEPAM HYDROCHLORIDE [Suspect]
     Indication: ANXIETY
     Dosage: 750 MG, ONCE/SINGLE
     Route: 048
     Dates: start: 20111002
  4. FLURAZEPAM HCL [Suspect]
     Dosage: 2 BOXES
     Route: 048
     Dates: start: 20111002
  5. ANAFRANIL [Suspect]
     Dosage: 1000 MG, ONCE/SINGLE
     Route: 048
     Dates: start: 20111002
  6. HALDOL [Suspect]
     Indication: SCHIZOPHRENIA
     Dosage: 600 MG, ONCE4SDO
     Route: 048
     Dates: start: 20111002, end: 20111002

REACTIONS (3)
  - LOSS OF CONSCIOUSNESS [None]
  - SUICIDE ATTEMPT [None]
  - INCORRECT DOSE ADMINISTERED [None]
